FAERS Safety Report 23433535 (Version 3)
Quarter: 2024Q2

REPORT INFORMATION
  Report Type: Spontaneous
  Country: US (occurrence: US)
  Receive Date: 20240123
  Receipt Date: 20240403
  Transmission Date: 20240715
  Serious: Yes (Other)
  Sender: FDA-Public Use
  Company Number: US-PFIZER INC-202400018681

PATIENT
  Age: 77 Year
  Sex: Female
  Weight: 40.4 kg

DRUGS (1)
  1. PHENYTOIN [Suspect]
     Active Substance: PHENYTOIN
     Indication: Seizure
     Dosage: 50 MG EVERY OTHER NIGHT
     Dates: start: 202312

REACTIONS (5)
  - Suicidal ideation [Recovered/Resolved]
  - Drug hypersensitivity [Recovered/Resolved]
  - Gait disturbance [Recovered/Resolved]
  - Nightmare [Unknown]
  - Balance disorder [Unknown]

NARRATIVE: CASE EVENT DATE: 20231201
